FAERS Safety Report 6646211-6 (Version None)
Quarter: 2010Q1

REPORT INFORMATION
  Report Type: 
  Country: None (occurrence: None)
  Receive Date: 20100323
  Receipt Date: 20100315
  Transmission Date: 20100710
  Serious: Yes (Hospitalization)
  Sender: FDA-Public Use
  Company Number: US-ROCHE-649458

PATIENT
  Sex: Female

DRUGS (3)
  1. PEGASYS [Suspect]
     Indication: HEPATITIS C
     Dosage: FORM: PRE FILLED SYRINGES
     Route: 065
     Dates: start: 20090728
  2. RIBASPHERE [Suspect]
     Indication: HEPATITIS C
     Route: 048
     Dates: start: 20090728
  3. RIBASPHERE [Suspect]
     Dosage: DIVIDED DOSES.
     Route: 048
     Dates: start: 20091116

REACTIONS (9)
  - ABDOMINAL PAIN [None]
  - ASTHENIA [None]
  - DYSPNOEA [None]
  - EYE DISORDER [None]
  - HAEMOGLOBIN [None]
  - HAEMOGLOBIN DECREASED [None]
  - NAUSEA [None]
  - RED BLOOD CELL COUNT DECREASED [None]
  - TRANSFUSION [None]
